FAERS Safety Report 23369573 (Version 1)
Quarter: 2024Q1

REPORT INFORMATION
  Report Type: Spontaneous
  Country: None (occurrence: US)
  Receive Date: 20240105
  Receipt Date: 20240105
  Transmission Date: 20240410
  Serious: No
  Sender: FDA-Public Use
  Company Number: US-LGM Pharma Solutions, LLC-2150183

PATIENT
  Age: 51 Year
  Sex: Male

DRUGS (11)
  1. CHENODAL [Suspect]
     Active Substance: CHENODIOL
     Indication: Lipidosis
     Route: 048
     Dates: start: 20231104
  2. ARMODAFINIL [Concomitant]
     Active Substance: ARMODAFINIL
     Route: 065
  3. BACLOFEN [Concomitant]
     Active Substance: BACLOFEN
     Route: 065
  4. FISH OIL [Concomitant]
     Active Substance: FISH OIL
     Route: 065
  5. OMEPRAZOLE [Concomitant]
     Active Substance: OMEPRAZOLE
     Route: 065
  6. SIMVASTATIN [Concomitant]
     Active Substance: SIMVASTATIN
     Route: 065
  7. TRINTELLIX [Concomitant]
     Active Substance: VORTIOXETINE HYDROBROMIDE
     Route: 065
  8. VITAMIN B12 [Concomitant]
     Active Substance: CYANOCOBALAMIN
     Route: 065
  9. VITAMIN C [Concomitant]
     Active Substance: ASCORBIC ACID
     Route: 065
  10. WELLBUTRIN [Concomitant]
     Active Substance: BUPROPION HYDROCHLORIDE
     Route: 065
  11. ZOFRAN [Concomitant]
     Active Substance: ONDANSETRON HYDROCHLORIDE
     Route: 065

REACTIONS (2)
  - Vomiting [Unknown]
  - Gastritis [Unknown]
